FAERS Safety Report 17460186 (Version 1)
Quarter: 2020Q1

REPORT INFORMATION
  Report Type: Spontaneous
  Country: US (occurrence: US)
  Receive Date: 20200213
  Receipt Date: 20200213
  Transmission Date: 20200409
  Serious: No
  Sender: FDA-Public Use
  Company Number: None

PATIENT
  Age: 56 Year
  Sex: Female

DRUGS (1)
  1. TECFIDERA [Suspect]
     Active Substance: DIMETHYL FUMARATE
     Indication: MULTIPLE SCLEROSIS
     Dosage: ?          OTHER DOSE:120/240MG;?
     Route: 048
     Dates: start: 202002

REACTIONS (3)
  - Malaise [None]
  - Flushing [None]
  - Nausea [None]

NARRATIVE: CASE EVENT DATE: 202002
